FAERS Safety Report 14612018 (Version 1)
Quarter: 2018Q1

REPORT INFORMATION
  Report Type: Spontaneous
  Country: US (occurrence: US)
  Receive Date: 20180307
  Receipt Date: 20180307
  Transmission Date: 20180509
  Serious: Yes (Other)
  Sender: FDA-Public Use
  Company Number: None

PATIENT
  Age: 14 Year
  Sex: Male
  Weight: 94.35 kg

DRUGS (2)
  1. GUANFACINE ER 2MG [Suspect]
     Active Substance: GUANFACINE
     Indication: AUTISM SPECTRUM DISORDER
     Route: 048
     Dates: start: 20171207, end: 20180107
  2. GUANFACINE ER 2MG [Suspect]
     Active Substance: GUANFACINE
     Indication: ATTENTION DEFICIT/HYPERACTIVITY DISORDER
     Route: 048
     Dates: start: 20171207, end: 20180107

REACTIONS (3)
  - Tic [None]
  - Therapy cessation [None]
  - Blepharospasm [None]

NARRATIVE: CASE EVENT DATE: 20171207
